FAERS Safety Report 13569753 (Version 3)
Quarter: 2017Q3

REPORT INFORMATION
  Report Type: Report from Study
  Country: US (occurrence: US)
  Receive Date: 20170522
  Receipt Date: 20170710
  Transmission Date: 20171127
  Serious: Yes (Other)
  Sender: FDA-Public Use
  Company Number: US-BRISTOL-MYERS SQUIBB COMPANY-BMS-2017-042747

PATIENT
  Sex: Female
  Weight: 54.42 kg

DRUGS (1)
  1. ABATACEPT [Suspect]
     Active Substance: ABATACEPT
     Indication: PRODUCT USED FOR UNKNOWN INDICATION
     Dosage: UNK
     Route: 058
     Dates: start: 201704

REACTIONS (4)
  - Cerebrovascular accident [Unknown]
  - Drug administration error [Unknown]
  - Drug ineffective [Unknown]
  - Syringe issue [Unknown]
